FAERS Safety Report 16713854 (Version 1)
Quarter: 2019Q3

REPORT INFORMATION
  Report Type: Spontaneous
  Country: JP (occurrence: JP)
  Receive Date: 20190819
  Receipt Date: 20190819
  Transmission Date: 20191004
  Serious: Yes (Death, Other)
  Sender: FDA-Public Use
  Company Number: JP-TEVA-2019-JP-1093609

PATIENT
  Age: 70 Year
  Sex: Male

DRUGS (1)
  1. GEMCITABINE. [Suspect]
     Active Substance: GEMCITABINE
     Indication: CHOLANGIOCARCINOMA
     Dosage: ON DAYS 1, 8 AND 15 EVERY 4 WEEKS. RECEIVED TWO COURSES.
     Route: 065

REACTIONS (4)
  - Haematemesis [Fatal]
  - Vascular pseudoaneurysm [Fatal]
  - Disease recurrence [Fatal]
  - Biliary tract disorder [Fatal]
